FAERS Safety Report 15551148 (Version 2)
Quarter: 2018Q4

REPORT INFORMATION
  Report Type: Spontaneous
  Country: US (occurrence: US)
  Receive Date: 20181025
  Receipt Date: 20181130
  Transmission Date: 20190205
  Serious: No
  Sender: FDA-Public Use
  Company Number: PHEH2018US044390

PATIENT
  Sex: Male

DRUGS (1)
  1. CIPRODEX [Suspect]
     Active Substance: CIPROFLOXACIN HYDROCHLORIDE\DEXAMETHASONE
     Indication: PRODUCT USED FOR UNKNOWN INDICATION
     Dosage: TAKE 4 DROPS IN THE RIGHT EAR TWICE A DAY
     Route: 001

REACTIONS (4)
  - Drug ineffective [Unknown]
  - Hypoacusis [Unknown]
  - Ear infection [Unknown]
  - Ear discomfort [Unknown]
